FAERS Safety Report 16025347 (Version 2)
Quarter: 2019Q1

REPORT INFORMATION
  Report Type: Spontaneous
  Country: US (occurrence: US)
  Receive Date: 20190301
  Receipt Date: 20190307
  Transmission Date: 20190418
  Serious: Yes (Other)
  Sender: FDA-Public Use
  Company Number: US-ASTRAZENECA-2018SF26653

PATIENT
  Age: 28415 Day
  Sex: Male
  Weight: 102.3 kg

DRUGS (6)
  1. ALLOPURINOL. [Concomitant]
     Active Substance: ALLOPURINOL
  2. ELIQUIS [Concomitant]
     Active Substance: APIXABAN
  3. VALSARTAN. [Concomitant]
     Active Substance: VALSARTAN
  4. METFORMIN [Concomitant]
     Active Substance: METFORMIN HYDROCHLORIDE
  5. NEXIUM [Suspect]
     Active Substance: ESOMEPRAZOLE MAGNESIUM
     Route: 048
     Dates: start: 20010220, end: 20061231
  6. DILTIAZEM. [Concomitant]
     Active Substance: DILTIAZEM

REACTIONS (3)
  - Chronic kidney disease [Unknown]
  - Renal hypertension [Unknown]
  - Renal injury [Unknown]

NARRATIVE: CASE EVENT DATE: 20180828
